FAERS Safety Report 12414759 (Version 3)
Quarter: 2016Q3

REPORT INFORMATION
  Report Type: Report from Study
  Country: US (occurrence: US)
  Receive Date: 20160529
  Receipt Date: 20160801
  Transmission Date: 20161109
  Serious: No
  Sender: FDA-Public Use
  Company Number: US-AMGEN-USASL2016066455

PATIENT
  Age: 42 Year
  Sex: Female

DRUGS (2)
  1. METHOTREXATE. [Suspect]
     Active Substance: METHOTREXATE
     Indication: PRODUCT USED FOR UNKNOWN INDICATION
     Dosage: UNK
     Route: 065
  2. ENBREL [Suspect]
     Active Substance: ETANERCEPT
     Indication: RHEUMATOID ARTHRITIS
     Dosage: 50 MG, QWK
     Route: 065
     Dates: start: 20160513

REACTIONS (6)
  - Vomiting [Unknown]
  - Injection site rash [Recovered/Resolved]
  - Oral herpes [Recovered/Resolved]
  - Migraine [Unknown]
  - Hypophagia [Unknown]
  - Pain [Unknown]

NARRATIVE: CASE EVENT DATE: 2016
